FAERS Safety Report 7504167-8 (Version None)
Quarter: 2011Q2

REPORT INFORMATION
  Report Type: 
  Country: None (occurrence: None)
  Receive Date: 20110525
  Receipt Date: 20110512
  Transmission Date: 20111010
  Serious: Yes (Other)
  Sender: FDA-Public Use
  Company Number: US-ELI_LILLY_AND_COMPANY-US201103007495

PATIENT
  Sex: Male

DRUGS (24)
  1. BYSTOLIC [Concomitant]
  2. EFFEXOR [Concomitant]
  3. MINOXIDIL [Concomitant]
  4. LASIX [Concomitant]
  5. ASPIRIN [Concomitant]
  6. FORTEO [Suspect]
     Indication: OSTEOPOROSIS
     Dosage: 20 UG, QD
     Dates: start: 20110126
  7. SYNTHROID [Concomitant]
  8. SPIRONOLACTONE [Concomitant]
  9. PLAVIX [Concomitant]
  10. NITROGLYCERIN [Concomitant]
  11. VITAMINS [Concomitant]
  12. SCOPOLAMINE [Concomitant]
  13. FORTEO [Suspect]
     Dosage: 20 UG, QD
  14. NASONEX [Concomitant]
  15. ZOCOR [Concomitant]
  16. NITROLINGUAL [Concomitant]
  17. REQUIP [Concomitant]
  18. DEXLANSOPRAZOLE [Concomitant]
  19. HYDRALAZINE HCL [Concomitant]
  20. IPRATROPIUM BROMIDE [Concomitant]
  21. PROCARDIA [Suspect]
  22. CORTRIL [Concomitant]
  23. POTASSIUM CHLORIDE [Concomitant]
  24. NITRO-BID [Concomitant]

REACTIONS (8)
  - FALL [None]
  - SCRATCH [None]
  - DIARRHOEA [None]
  - DEHYDRATION [None]
  - HAEMORRHAGE [None]
  - CONSTIPATION [None]
  - FEMUR FRACTURE [None]
  - BLOOD PRESSURE DECREASED [None]
